FAERS Safety Report 7646575-0 (Version None)
Quarter: 2011Q3

REPORT INFORMATION
  Report Type: 
  Country: None (occurrence: None)
  Receive Date: 20110801
  Receipt Date: 20110725
  Transmission Date: 20111222
  Serious: Yes (Hospitalization, Other)
  Sender: FDA-Public Use
  Company Number: US-AMGEN-USASP2011035406

PATIENT
  Age: 41 Year
  Sex: Male
  Weight: 133.4 kg

DRUGS (4)
  1. NPLATE [Suspect]
     Indication: IDIOPATHIC THROMBOCYTOPENIC PURPURA
     Dosage: 1240 A?G, QWK
     Route: 058
     Dates: start: 20090615
  2. PREDNISONE TAB [Concomitant]
  3. CORTICOSTEROIDS [Concomitant]
  4. RITUXIMAB [Concomitant]

REACTIONS (10)
  - DRUG HYPERSENSITIVITY [None]
  - HEADACHE [None]
  - PLATELET COUNT ABNORMAL [None]
  - MUSCULAR WEAKNESS [None]
  - PARAESTHESIA [None]
  - PLATELET COUNT DECREASED [None]
  - VIITH NERVE PARALYSIS [None]
  - MALAISE [None]
  - ARTHRALGIA [None]
  - EPISTAXIS [None]
